FAERS Safety Report 17028040 (Version 1)
Quarter: 2019Q4

REPORT INFORMATION
  Report Type: Spontaneous
  Country: US (occurrence: US)
  Receive Date: 20191010
  Receipt Date: 20191010
  Transmission Date: 20200122
  Serious: Yes (Other)
  Sender: FDA-Public Use
  Company Number: None

PATIENT
  Age: 59 Year
  Sex: Male

DRUGS (5)
  1. COPAXONE [Suspect]
     Active Substance: GLATIRAMER ACETATE
     Indication: MULTIPLE SCLEROSIS
     Route: 058
     Dates: start: 20140718
  2. MODANAFIL [Concomitant]
  3. TIZANADINE [Concomitant]
     Active Substance: TIZANIDINE
  4. COPAXONE [Concomitant]
     Active Substance: GLATIRAMER ACETATE
  5. LYRICA [Concomitant]
     Active Substance: PREGABALIN

REACTIONS (4)
  - Complication associated with device [None]
  - Needle issue [None]
  - Abdominal operation [None]
  - Abdominal pain [None]
